FAERS Safety Report 9190667 (Version 1)
Quarter: 2013Q1

REPORT INFORMATION
  Report Type: Spontaneous
  Country: GB (occurrence: None)
  Receive Date: 20130322
  Receipt Date: 20130322
  Transmission Date: 20140127
  Serious: Yes (Other)
  Sender: FDA-Public Use
  Company Number: AUR-APL-2013-02290

PATIENT
  Age: 37 Year
  Sex: Female

DRUGS (3)
  1. RIBAVIRIN (RIBAVIRIN) [Suspect]
  2. PEGYLATED INTERFERON [Suspect]
  3. TELAPREVIR (TELAPREVIR) [Suspect]
     Route: 048

REACTIONS (3)
  - Muscular weakness [None]
  - Myalgia [None]
  - Mobility decreased [None]
